FAERS Safety Report 21830454 (Version 1)
Quarter: 2023Q1

REPORT INFORMATION
  Report Type: Spontaneous
  Country: CA (occurrence: CA)
  Receive Date: 20230106
  Receipt Date: 20230106
  Transmission Date: 20230417
  Serious: Yes (Hospitalization)
  Sender: FDA-Public Use
  Company Number: CA-009507513-2301CAN000927

PATIENT
  Age: 61 Year
  Sex: Female
  Weight: 86 kg

DRUGS (8)
  1. EMEND [Suspect]
     Active Substance: APREPITANT
     Dosage: UNK
     Route: 048
  2. CISPLATIN [Suspect]
     Active Substance: CISPLATIN
     Dosage: 204 MILLIGRAM, ONCE
     Route: 042
  3. CYTARABINE [Suspect]
     Active Substance: CYTARABINE
     Dosage: 4080 MILLIGRAM, 1 EVERY 1 DAYS
     Route: 065
  4. DEXAMETHASONE [Suspect]
     Active Substance: DEXAMETHASONE
     Dosage: 40 MILLIGRAM, 1 EVERY 1 DAYS
     Route: 065
  5. MAXIDEX [Suspect]
     Active Substance: DEXAMETHASONE
     Dosage: 2 DROPS, Q6H
     Route: 047
  6. FILGRASTIM [Suspect]
     Active Substance: FILGRASTIM
     Dosage: 6 MILLIGRAM, QD
     Route: 065
  7. PANTOPRAZOLE MAGNESIUM [Suspect]
     Active Substance: PANTOPRAZOLE MAGNESIUM
     Dosage: 40 MILLIGRAM
     Route: 065
  8. RITUXIMAB [Suspect]
     Active Substance: RITUXIMAB
     Dosage: 770 MILLIGRAM, ONCE
     Route: 042

REACTIONS (6)
  - Fluid intake reduced [Unknown]
  - Feeding disorder [Recovered/Resolved]
  - White blood cell count decreased [Recovered/Resolved]
  - Neutrophil count decreased [Recovered/Resolved]
  - Vomiting [Recovered/Resolved]
  - Dysgeusia [Recovered/Resolved]
